FAERS Safety Report 20639789 (Version 6)
Quarter: 2024Q3

REPORT INFORMATION
  Report Type: Spontaneous
  Country: US (occurrence: US)
  Receive Date: 20220326
  Receipt Date: 20240905
  Transmission Date: 20241017
  Serious: No
  Sender: SANOFI AVENTIS
  Company Number: US-SA-SAC20220316001443

PATIENT
  Age: 62 Year
  Sex: Male
  Weight: 95.238 kg

DRUGS (4)
  1. CEREZYME [Suspect]
     Active Substance: IMIGLUCERASE
     Indication: Gaucher^s disease
     Dosage: 5600 U, QOW
     Route: 042
     Dates: start: 201608
  2. CEREZYME [Suspect]
     Active Substance: IMIGLUCERASE
     Dosage: 5600 IU, QOW
     Route: 042
     Dates: start: 20210209
  3. SODIUM CHLORIDE [Concomitant]
     Active Substance: SODIUM CHLORIDE
     Dosage: UNK
  4. STERILE WATER [Concomitant]
     Active Substance: WATER
     Dosage: UNK

REACTIONS (6)
  - Weight increased [Unknown]
  - Vein disorder [Unknown]
  - Infusion site discolouration [Unknown]
  - Infusion site pain [Unknown]
  - Infusion site swelling [Unknown]
  - Inappropriate schedule of product administration [Unknown]

NARRATIVE: CASE EVENT DATE: 20240626
